FAERS Safety Report 14917341 (Version 1)
Quarter: 2018Q2

REPORT INFORMATION
  Report Type: Report from Study
  Country: US (occurrence: US)
  Receive Date: 20180521
  Receipt Date: 20180521
  Transmission Date: 20180711
  Serious: Yes (Other)
  Sender: FDA-Public Use
  Company Number: US-ROCHE-2125239

PATIENT
  Sex: Male

DRUGS (12)
  1. CARVEDILOL. [Concomitant]
     Active Substance: CARVEDILOL
     Dosage: 30 DAYS
     Route: 048
     Dates: start: 20171106
  2. OXYCODONE [Concomitant]
     Active Substance: OXYCODONE
     Route: 048
     Dates: start: 20160404
  3. PRADAXA [Concomitant]
     Active Substance: DABIGATRAN ETEXILATE MESYLATE
     Route: 048
     Dates: start: 20161030
  4. LOSARTAN. [Concomitant]
     Active Substance: LOSARTAN
     Dosage: 90 DAYS
     Route: 048
     Dates: start: 20180206
  5. NEORAL [Concomitant]
     Active Substance: CYCLOSPORINE
     Route: 048
     Dates: start: 20180509
  6. PANTOPRAZOLE [Concomitant]
     Active Substance: PANTOPRAZOLE
     Route: 048
  7. SIMVASTATIN. [Concomitant]
     Active Substance: SIMVASTATIN
     Route: 048
     Dates: start: 20180416
  8. CELLCEPT [Suspect]
     Active Substance: MYCOPHENOLATE MOFETIL\MYCOPHENOLATE MOFETIL HYDROCHLORIDE
     Indication: RENAL TRANSPLANT
     Dosage: ^TAKE 4 CAPSULES EVERYDAY^
     Route: 048
     Dates: start: 20170421
  9. FLUTICASONE. [Concomitant]
     Active Substance: FLUTICASONE
     Dosage: 30 DAYS, 50 MCG/ACTUATION NASAL SPRAY
     Route: 045
     Dates: start: 20171107
  10. ZOLPIDEM [Concomitant]
     Active Substance: ZOLPIDEM\ZOLPIDEM TARTRATE
     Route: 048
     Dates: start: 20180310
  11. AMIODARONE [Concomitant]
     Active Substance: AMIODARONE
     Dosage: 30 DAYS
     Route: 048
     Dates: start: 20180404
  12. FERROUS SULFATE. [Concomitant]
     Active Substance: FERROUS SULFATE
     Route: 048
     Dates: start: 20180108

REACTIONS (11)
  - Treatment failure [Not Recovered/Not Resolved]
  - Dizziness [Not Recovered/Not Resolved]
  - Dyspnoea [Unknown]
  - Haemorrhage [Unknown]
  - Neck pain [Not Recovered/Not Resolved]
  - Hypoaesthesia [Not Recovered/Not Resolved]
  - Palpitations [Not Recovered/Not Resolved]
  - Cardiac murmur [Unknown]
  - Atrial fibrillation [Not Recovered/Not Resolved]
  - Depression [Not Recovered/Not Resolved]
  - Sleep apnoea syndrome [Not Recovered/Not Resolved]
